FAERS Safety Report 7633563-3 (Version None)
Quarter: 2011Q3

REPORT INFORMATION
  Report Type: 
  Country: None (occurrence: None)
  Receive Date: 20110725
  Receipt Date: 20110705
  Transmission Date: 20111222
  Serious: Yes (Death)
  Sender: FDA-Public Use
  Company Number: US-GLAXOSMITHKLINE-A0839020A

PATIENT
  Age: 63 Year
  Sex: Female
  Weight: 79.5 kg

DRUGS (5)
  1. METOPROLOL TARTRATE [Concomitant]
  2. AVANDIA [Suspect]
     Indication: TYPE 2 DIABETES MELLITUS
     Dosage: 4MG PER DAY
     Route: 048
     Dates: start: 20050224
  3. TOPROL-XL [Concomitant]
  4. HYZAAR [Concomitant]
  5. GLUCOPHAGE [Concomitant]

REACTIONS (1)
  - ACUTE MYOCARDIAL INFARCTION [None]
